FAERS Safety Report 17477763 (Version 2)
Quarter: 2020Q3

REPORT INFORMATION
  Report Type: Report from Study
  Country: US (occurrence: US)
  Receive Date: 20200228
  Receipt Date: 20200305
  Transmission Date: 20201104
  Serious: Yes (Hospitalization)
  Sender: FDA-Public Use
  Company Number: US-PFIZER INC-2020079449

PATIENT
  Age: 44 Year
  Sex: Female
  Weight: 68.75 kg

DRUGS (1)
  1. TALAZOPARIB. [Suspect]
     Active Substance: TALAZOPARIB
     Indication: HEPATIC FUNCTION ABNORMAL
     Dosage: UNK
     Route: 048

REACTIONS (2)
  - Hypokalaemia [Recovered/Resolved with Sequelae]
  - Hyponatraemia [Recovered/Resolved with Sequelae]

NARRATIVE: CASE EVENT DATE: 20200204
